FAERS Safety Report 16522332 (Version 2)
Quarter: 2019Q3

REPORT INFORMATION
  Report Type: Spontaneous
  Country: US (occurrence: US)
  Receive Date: 20190703
  Receipt Date: 20190703
  Transmission Date: 20191004
  Serious: No
  Sender: FDA-Public Use
  Company Number: US-PFIZER INC-2019280265

PATIENT

DRUGS (2)
  1. GABAPENTIN. [Suspect]
     Active Substance: GABAPENTIN
     Indication: DISTICHIASIS
     Dosage: UNK
  2. GABAPENTIN. [Suspect]
     Active Substance: GABAPENTIN
     Indication: FIBROMYALGIA

REACTIONS (8)
  - Dysuria [Unknown]
  - Product use in unapproved indication [Unknown]
  - Ear disorder [Unknown]
  - Nasal dryness [Unknown]
  - Off label use [Unknown]
  - Dry skin [Unknown]
  - Dry eye [Unknown]
  - Neuralgia [Unknown]
